FAERS Safety Report 6548005-9 (Version None)
Quarter: 2010Q1

REPORT INFORMATION
  Report Type: 
  Country: None (occurrence: None)
  Receive Date: 20100124
  Receipt Date: 20091209
  Transmission Date: 20100710
  Serious: No
  Sender: FDA-Public Use
  Company Number: US-ALEXION-A200901064

PATIENT
  Sex: Female

DRUGS (6)
  1. SOLIRIS [Suspect]
     Indication: PAROXYSMAL NOCTURNAL HAEMOGLOBINURIA
     Dosage: 600 MG, QW X 4
     Route: 042
     Dates: start: 20091112, end: 20091206
  2. SOLIRIS [Suspect]
     Dosage: 900 MG, UNK
     Route: 042
     Dates: start: 20091216
  3. BACLOFEN [Concomitant]
     Dosage: 10 MG, TID
     Route: 048
  4. FOLIC ACID [Concomitant]
     Dosage: 1 MG, QD
     Route: 048
  5. PROPRANOLOL [Concomitant]
     Dosage: 80 MG, QD
     Route: 048
  6. ASPIRIN [Concomitant]
     Dosage: 81 MG, QD
     Route: 048

REACTIONS (2)
  - INAPPROPRIATE SCHEDULE OF DRUG ADMINISTRATION [None]
  - PARAESTHESIA [None]
